FAERS Safety Report 22523146 (Version 1)
Quarter: 2023Q2

REPORT INFORMATION
  Report Type: Spontaneous
  Country: SO (occurrence: SO)
  Receive Date: 20230606
  Receipt Date: 20230606
  Transmission Date: 20230721
  Serious: No
  Sender: FDA-Public Use
  Company Number: SO-ALKEM LABORATORIES LIMITED-SO-ALKEM-2023-05245

PATIENT
  Age: 62 Year
  Sex: Female

DRUGS (6)
  1. VANCOMYCIN [Suspect]
     Active Substance: VANCOMYCIN
     Indication: Evidence based treatment
     Dosage: UNK, (FORTIFED SUSPENSION)
     Route: 047
  2. VANCOMYCIN [Suspect]
     Active Substance: VANCOMYCIN
     Dosage: UNK (FORTIFED SUSPENSION)
     Route: 047
  3. ATROPINE [Suspect]
     Active Substance: ATROPINE
     Indication: Evidence based treatment
     Dosage: UNK (SUSPENSION)
     Route: 047
  4. DOXYCYCLINE [Suspect]
     Active Substance: DOXYCYCLINE
     Indication: Evidence based treatment
     Dosage: 100 MILLIGRAM
     Route: 048
  5. GENTAMICIN [Suspect]
     Active Substance: GENTAMICIN
     Indication: Evidence based treatment
     Dosage: UNK, (FORTIFIED)
     Route: 047
  6. NATAMYCIN [Suspect]
     Active Substance: NATAMYCIN
     Indication: Evidence based treatment
     Dosage: UNK
     Route: 047

REACTIONS (1)
  - Therapy non-responder [Unknown]
